FAERS Safety Report 23203225 (Version 1)
Quarter: 2023Q4

REPORT INFORMATION
  Report Type: Spontaneous
  Country: US (occurrence: US)
  Receive Date: 20231120
  Receipt Date: 20231120
  Transmission Date: 20240109
  Serious: No
  Sender: FDA-Public Use
  Company Number: US-BAUSCHBL-2023BNL011552

PATIENT
  Age: 80 Year
  Sex: Female

DRUGS (1)
  1. MIEBO [Suspect]
     Active Substance: PERFLUOROHEXYLOCTANE
     Indication: Product used for unknown indication
     Dosage: INSTILL ONE DROP INTO EACH EYE FOUR TIMES DAILY
     Route: 047

REACTIONS (1)
  - Eye pain [Unknown]
